FAERS Safety Report 19013260 (Version 1)
Quarter: 2021Q1

REPORT INFORMATION
  Report Type: Report from Study
  Country: US (occurrence: US)
  Receive Date: 20210315
  Receipt Date: 20210315
  Transmission Date: 20210420
  Serious: Yes (Hospitalization, Other)
  Sender: FDA-Public Use
  Company Number: US-PFIZER INC-2021249073

PATIENT
  Age: 44 Year
  Sex: Female
  Weight: 47.3 kg

DRUGS (27)
  1. OXYGEN. [Concomitant]
     Active Substance: OXYGEN
     Dosage: UNK
  2. BUMEX [Concomitant]
     Active Substance: BUMETANIDE
     Dosage: 2 MG
     Dates: start: 20181023
  3. PANTOPRAZOLE [Concomitant]
     Active Substance: PANTOPRAZOLE
     Dosage: UNK
  4. PREDNISONE. [Concomitant]
     Active Substance: PREDNISONE
     Dosage: UNK
  5. FUROSEMIDE. [Suspect]
     Active Substance: FUROSEMIDE
     Dosage: UNK
  6. THIAMINE. [Concomitant]
     Active Substance: THIAMINE
     Dosage: 100 MG
  7. AZATHIOPRINE. [Concomitant]
     Active Substance: AZATHIOPRINE
     Dosage: UNK
  8. CALCIUM CARBONATE. [Concomitant]
     Active Substance: CALCIUM CARBONATE
     Dosage: UNK
  9. NEXPLANON [Concomitant]
     Active Substance: ETONOGESTREL
     Dosage: UNK
  10. POTASSIUM [Concomitant]
     Active Substance: POTASSIUM
     Dosage: UNK
     Dates: start: 20181023
  11. SENNOSIDES. [Concomitant]
     Active Substance: SENNOSIDES
     Dosage: 8.6 MG
  12. ALENDRONATE [Concomitant]
     Active Substance: ALENDRONATE SODIUM
     Dosage: UNK
  13. MORPHINE INJECTION [Concomitant]
     Active Substance: MORPHINE
     Dosage: 2 MG
     Dates: start: 20190523
  14. AMLODIPINE [Concomitant]
     Active Substance: AMLODIPINE BESYLATE
     Dosage: 5 MG
  15. CLOPIDOGREL [Concomitant]
     Active Substance: CLOPIDOGREL BISULFATE
     Dosage: 75 MG
  16. NEORAL [Concomitant]
     Active Substance: CYCLOSPORINE
     Dosage: UNK
  17. ASCORBIC ACID. [Concomitant]
     Active Substance: ASCORBIC ACID
     Dosage: UNK
  18. METOLAZONE. [Suspect]
     Active Substance: METOLAZONE
     Dosage: 2.5 MG
     Dates: start: 20190621, end: 20190905
  19. THIAMINE. [Concomitant]
     Active Substance: THIAMINE
     Dosage: 100 MG
     Dates: start: 20181025
  20. COUMADIN [Concomitant]
     Active Substance: WARFARIN SODIUM
     Dosage: 1 MG
  21. FERROUS SULFATE. [Concomitant]
     Active Substance: FERROUS SULFATE
     Dosage: UNK
  22. COLACE [Concomitant]
     Active Substance: DOCUSATE SODIUM
     Dosage: UNK
  23. TREPROSTINIL SODIUM [Suspect]
     Active Substance: TREPROSTINIL SODIUM
     Indication: PULMONARY HYPERTENSION
     Dosage: 18 UG, 2X/DAY (AFTERNOON AND EVENING)
     Route: 055
     Dates: start: 20180731
  24. TREPROSTINIL SODIUM [Suspect]
     Active Substance: TREPROSTINIL SODIUM
     Indication: INTERSTITIAL LUNG DISEASE
     Dosage: 54 UG, 4X/DAY
     Route: 055
     Dates: start: 20190409
  25. METOLAZONE. [Suspect]
     Active Substance: METOLAZONE
     Dosage: 2.5 MG
     Dates: start: 20190920
  26. SENNA ALEXANDRINA [Concomitant]
     Active Substance: SENNA LEAF
  27. MIRALAX [Concomitant]
     Active Substance: POLYETHYLENE GLYCOL 3350
     Dosage: 17 G
     Dates: start: 20181018

REACTIONS (2)
  - Acute kidney injury [Not Recovered/Not Resolved]
  - Fluid overload [Recovered/Resolved]

NARRATIVE: CASE EVENT DATE: 20190615
